FAERS Safety Report 8003655-8 (Version None)
Quarter: 2011Q4

REPORT INFORMATION
  Report Type: 
  Country: None (occurrence: None)
  Receive Date: 20111222
  Receipt Date: 20111214
  Transmission Date: 20120403
  Serious: Yes (Hospitalization, Other)
  Sender: FDA-Public Use
  Company Number: DE-ACTELION-A-US2011-58512

PATIENT

DRUGS (2)
  1. VENTAVIS [Suspect]
     Dosage: 0.25 UG, UNK
     Route: 055
  2. VENTAVIS [Suspect]
     Indication: PULMONARY ARTERIAL HYPERTENSION
     Dosage: 2.5 UG, UNK
     Route: 055
     Dates: start: 20110101

REACTIONS (3)
  - RESPIRATORY TRACT INFECTION [None]
  - PARAESTHESIA [None]
  - OXYGEN SATURATION DECREASED [None]
